FAERS Safety Report 8885338 (Version 1)
Quarter: 2012Q4

REPORT INFORMATION
  Report Type: 
  Country: US (occurrence: US)
  Receive Date: 20121105
  Receipt Date: 20121105
  Transmission Date: 20130627
  Serious: No
  Sender: FDA-Public Use
  Company Number: US-BAYER-2012-115519

PATIENT
  Age: 63 Year
  Sex: Male

DRUGS (2)
  1. LEVITRA [Suspect]
     Indication: ERECTILE DYSFUNCTION
     Dosage: 20 mg, PRN
     Dates: start: 201101
  2. ANTIHYPERTENSIVES [Concomitant]

REACTIONS (3)
  - Drug ineffective [None]
  - Drug ineffective [None]
  - Drug ineffective [None]
